FAERS Safety Report 7999179-4 (Version None)
Quarter: 2011Q4

REPORT INFORMATION
  Report Type: 
  Country: None (occurrence: None)
  Receive Date: 20111221
  Receipt Date: 20111213
  Transmission Date: 20120403
  Serious: Yes (Life-Threatening, Hospitalization, Other)
  Sender: FDA-Public Use
  Company Number: US-MYLANLABS-2011S1025582

PATIENT
  Age: 13 Year
  Sex: Male

DRUGS (2)
  1. METADATE CD [Concomitant]
  2. LAMOTRIGINE [Suspect]
     Indication: BIPOLAR DISORDER
     Dates: start: 20100122

REACTIONS (17)
  - PNEUMOTHORAX [None]
  - DEPRESSION [None]
  - ASTEATOSIS [None]
  - SHOCK HAEMORRHAGIC [None]
  - RESPIRATORY ARREST [None]
  - PANIC ATTACK [None]
  - CORNEAL SCAR [None]
  - EYE EXCISION [None]
  - POST-TRAUMATIC STRESS DISORDER [None]
  - ATRIAL FIBRILLATION [None]
  - SCAR [None]
  - PIGMENTATION DISORDER [None]
  - PERICARDIAL EFFUSION [None]
  - LUNG DISORDER [None]
  - MILIA [None]
  - STEVENS-JOHNSON SYNDROME [None]
  - CARDIAC ARREST [None]
